FAERS Safety Report 6972696-1 (Version None)
Quarter: 2010Q3

REPORT INFORMATION
  Report Type: 
  Country: None (occurrence: None)
  Receive Date: 20100909
  Receipt Date: 20090817
  Transmission Date: 20110219
  Serious: No
  Sender: FDA-Public Use
  Company Number: US-KINGPHARMUSA00001-K200900993

PATIENT
  Age: 43 Year
  Sex: Female

DRUGS (4)
  1. CYTOMEL [Suspect]
     Indication: HYPOTHYROIDISM
     Dosage: UNK
  2. THYROID TAB [Suspect]
     Indication: HYPOTHYROIDISM
     Dosage: 120 MG, QOD
     Dates: start: 20040101, end: 20090701
  3. THYROID TAB [Suspect]
     Dosage: 180 MG, QOD
     Dates: start: 20040101, end: 20090701
  4. THYROID TAB [Suspect]
     Dosage: 180 MG, QD
     Dates: start: 20090701

REACTIONS (2)
  - BURNING SENSATION MUCOSAL [None]
  - HYPOTHYROIDISM [None]
